FAERS Safety Report 7438493-8 (Version None)
Quarter: 2011Q2

REPORT INFORMATION
  Report Type: 
  Country: None (occurrence: None)
  Receive Date: 20110426
  Receipt Date: 20110421
  Transmission Date: 20111010
  Serious: Yes (Hospitalization)
  Sender: FDA-Public Use
  Company Number: US-AMGEN-USASP2011019016

PATIENT
  Sex: Female

DRUGS (2)
  1. CYCLOSPORINE [Concomitant]
  2. NPLATE [Suspect]
     Indication: MYELODYSPLASTIC SYNDROME
     Dosage: 750 A?G, UNK
     Dates: start: 20110301, end: 20110301

REACTIONS (2)
  - HOSPITALISATION [None]
  - MYALGIA [None]
